FAERS Safety Report 11246610 (Version 1)
Quarter: 2015Q3

REPORT INFORMATION
  Report Type: Spontaneous
  Country: DE (occurrence: None)
  Receive Date: 20150706
  Receipt Date: 20150706
  Transmission Date: 20151125
  Serious: Yes (Life-Threatening, Disabling)
  Sender: FDA-Public Use
  Company Number: None

PATIENT
  Age: 34 Year
  Sex: Female
  Weight: 70 kg

DRUGS (1)
  1. VENLAFAXINE [Suspect]
     Active Substance: VENLAFAXINE HYDROCHLORIDE
     Indication: DEPRESSION
     Dosage: 1
     Route: 048
     Dates: start: 20150402, end: 20150406

REACTIONS (20)
  - Mental disorder [None]
  - Panic attack [None]
  - Eye pain [None]
  - Agitation [None]
  - Urinary retention [None]
  - Muscle twitching [None]
  - Tendon pain [None]
  - Motion sickness [None]
  - Muscle contractions involuntary [None]
  - Pain [None]
  - Obsessive-compulsive disorder [None]
  - No therapeutic response [None]
  - Uterine haemorrhage [None]
  - Chest pain [None]
  - Headache [None]
  - Hypoaesthesia [None]
  - Dyskinesia [None]
  - Suicidal ideation [None]
  - Homicidal ideation [None]
  - Hyperhidrosis [None]

NARRATIVE: CASE EVENT DATE: 20150402
